FAERS Safety Report 15980482 (Version 2)
Quarter: 2019Q1

REPORT INFORMATION
  Report Type: Spontaneous
  Country: US (occurrence: US)
  Receive Date: 20190219
  Receipt Date: 20190322
  Transmission Date: 20190418
  Serious: No
  Sender: FDA-Public Use
  Company Number: US-GLAXOSMITHKLINE-US2019023131

PATIENT
  Sex: Female

DRUGS (1)
  1. VENTOLIN HFA [Suspect]
     Active Substance: ALBUTEROL SULFATE
     Indication: PNEUMONIA
     Dosage: UNK UNK, U
     Route: 055

REACTIONS (5)
  - Off label use [Unknown]
  - Cough [Unknown]
  - Product use in unapproved indication [Unknown]
  - Throat clearing [Unknown]
  - Product complaint [Unknown]
